FAERS Safety Report 9220240 (Version 2)
Quarter: 2013Q2

REPORT INFORMATION
  Report Type: Spontaneous
  Country: US (occurrence: US)
  Receive Date: 20130409
  Receipt Date: 20130426
  Transmission Date: 20140414
  Serious: Yes (Life-Threatening)
  Sender: FDA-Public Use
  Company Number: US-ROCHE-1211784

PATIENT
  Age: 49 Year
  Sex: Female
  Weight: 86.4 kg

DRUGS (4)
  1. XELODA [Suspect]
     Indication: COLORECTAL CANCER
     Route: 048
     Dates: start: 20130403
  2. COMPAZINE [Suspect]
     Indication: NAUSEA
     Route: 048
     Dates: start: 20130403, end: 20130406
  3. COMPAZINE [Suspect]
     Indication: VOMITING
  4. XANAX [Concomitant]
     Route: 065

REACTIONS (5)
  - Angioedema [Recovered/Resolved]
  - Anxiety [Unknown]
  - Fatigue [Unknown]
  - Agitation [Unknown]
  - Joint stiffness [Unknown]
